FAERS Safety Report 14934824 (Version 2)
Quarter: 2020Q1

REPORT INFORMATION
  Report Type: Spontaneous
  Country: FR (occurrence: FR)
  Receive Date: 20180524
  Receipt Date: 20200130
  Transmission Date: 20200409
  Serious: Yes (Hospitalization)
  Sender: FDA-Public Use
  Company Number: FR-PFIZER INC-2018138921

PATIENT
  Age: 75 Year
  Sex: Female
  Weight: 135 kg

DRUGS (9)
  1. INEXIUM /01479302/ [Concomitant]
     Active Substance: ESOMEPRAZOLE MAGNESIUM
     Dosage: 40 (UNSPECIFIED UNIT), 2X/DAY
     Route: 048
     Dates: start: 2010
  2. IBRANCE [Suspect]
     Active Substance: PALBOCICLIB
     Dosage: 1 DF, CYCLIC (3 WEEKS ON 1 WEEK OFF)
     Dates: start: 20171031, end: 20180419
  3. LAMALINE (ACETAMINOPHEN\CAFFEINE\OPIUM) [Concomitant]
     Active Substance: ACETAMINOPHEN\CAFFEINE\OPIUM
     Dosage: UNK
     Route: 054
     Dates: start: 20180418
  4. LOVENOX [Concomitant]
     Active Substance: ENOXAPARIN SODIUM
     Dosage: 0.6 (UNSPECIFIED UNIT), UNK
     Route: 058
     Dates: start: 201801
  5. ATARAX [Concomitant]
     Active Substance: HYDROXYZINE HYDROCHLORIDE
     Dosage: 25 (UNSPECIFIED UNIT), 2X/DAY
     Route: 048
     Dates: start: 2010
  6. AROMASINE [Concomitant]
     Active Substance: EXEMESTANE
     Dosage: 1 DF, DAILY
     Route: 048
     Dates: start: 20171115, end: 20180515
  7. LERCAN [Concomitant]
     Active Substance: LERCANIDIPINE
     Dosage: 20 (UNSPECIFIED UNIT), UNK
     Route: 048
     Dates: start: 2010
  8. CYMBALTA [Concomitant]
     Active Substance: DULOXETINE HYDROCHLORIDE
     Dosage: 60 (UNSPECIFIED UNIT), UNK
     Route: 048
     Dates: start: 2010
  9. LANTUS [Interacting]
     Active Substance: INSULIN GLARGINE
     Dosage: UNK
     Route: 058
     Dates: start: 201801

REACTIONS (4)
  - Fibrosis [Unknown]
  - Urinary tract infection [Unknown]
  - Radiation fibrosis [Not Recovered/Not Resolved]
  - Drug interaction [Unknown]

NARRATIVE: CASE EVENT DATE: 20180315
